FAERS Safety Report 14008598 (Version 1)
Quarter: 2017Q3

REPORT INFORMATION
  Report Type: Spontaneous
  Country: US (occurrence: US)
  Receive Date: 20170925
  Receipt Date: 20170925
  Transmission Date: 20171128
  Serious: Yes (Hospitalization, Other)
  Sender: FDA-Public Use
  Company Number: US-ELI_LILLY_AND_COMPANY-US201709004730

PATIENT
  Sex: Male

DRUGS (5)
  1. CYMBALTA [Suspect]
     Active Substance: DULOXETINE HYDROCHLORIDE
     Dosage: 140 MG, UNKNOWN
     Route: 065
  2. CYMBALTA [Suspect]
     Active Substance: DULOXETINE HYDROCHLORIDE
     Indication: ANGER
     Dosage: 60 MG, UNKNOWN
     Route: 065
     Dates: start: 2000
  3. LITHIUM. [Suspect]
     Active Substance: LITHIUM
     Indication: ANGER
     Dosage: UNK, UNKNOWN
     Route: 065
  4. DULOXETINE HYDROCHLORIDE. [Suspect]
     Active Substance: DULOXETINE HYDROCHLORIDE
     Indication: ANGER
     Dosage: UNK, UNKNOWN
     Route: 065
  5. CYMBALTA [Suspect]
     Active Substance: DULOXETINE HYDROCHLORIDE
     Dosage: 160 UNK, UNK
     Route: 065

REACTIONS (11)
  - Intracranial mass [Recovered/Resolved]
  - Renal failure [Unknown]
  - Off label use [Unknown]
  - Hypopituitarism [Unknown]
  - Toxicity to various agents [Unknown]
  - Self-injurious ideation [Recovered/Resolved]
  - Thyroid disorder [Unknown]
  - Prescribed overdose [Unknown]
  - Androgen deficiency [Unknown]
  - Road traffic accident [Recovered/Resolved]
  - Anger [Not Recovered/Not Resolved]

NARRATIVE: CASE EVENT DATE: 2009
